FAERS Safety Report 4992197-X (Version None)
Quarter: 2006Q2

REPORT INFORMATION
  Report Type: 
  Country: None (occurrence: None)
  Receive Date: 20060502
  Receipt Date: 20060418
  Transmission Date: 20061013
  Serious: Yes (Hospitalization)
  Sender: FDA-Public Use
  Company Number: 220634

PATIENT
  Age: 61 Year
  Sex: Male

DRUGS (6)
  1. MABTHERA (RITUXIMAB) CONC FOR SOLUTION FOR INFUSION [Suspect]
     Indication: NON-HODGKIN'S LYMPHOMA
  2. CYCLOPHOSPHAMIDE [Concomitant]
  3. DOXORUBICIN (DOXORUBIUCIN/DOXORUBICIN HYDROCHLORIDE) [Concomitant]
  4. VINCRISTINE [Concomitant]
  5. PREDNISONE TAB [Concomitant]
  6. NEUPOGEN [Concomitant]

REACTIONS (6)
  - HERPES ZOSTER [None]
  - NEUTROPENIA [None]
  - PNEUMOCYSTIS JIROVECI PNEUMONIA [None]
  - RESPIRATORY FAILURE [None]
  - STAPHYLOCOCCAL BACTERAEMIA [None]
  - WEIGHT DECREASED [None]
